FAERS Safety Report 22104697 (Version 1)
Quarter: 2023Q1

REPORT INFORMATION
  Report Type: Spontaneous
  Country: JP (occurrence: JP)
  Receive Date: 20230316
  Receipt Date: 20230316
  Transmission Date: 20230417
  Serious: Yes (Hospitalization, Other)
  Sender: FDA-Public Use
  Company Number: JP-BRISTOL-MYERS SQUIBB COMPANY-2023-037153

PATIENT
  Age: 72 Year
  Sex: Female

DRUGS (4)
  1. APIXABAN [Suspect]
     Active Substance: APIXABAN
     Indication: Pulmonary embolism
  2. BETAMETHASONE [Concomitant]
     Active Substance: BETAMETHASONE
     Indication: Rheumatoid vasculitis
  3. MEROPENEM [Concomitant]
     Active Substance: MEROPENEM
     Indication: Rheumatoid vasculitis
  4. VANCOMYCIN [Concomitant]
     Active Substance: VANCOMYCIN
     Indication: Staphylococcal bacteraemia

REACTIONS (2)
  - Haemothorax [Recovering/Resolving]
  - Anaemia [Unknown]
